FAERS Safety Report 6380953-5 (Version None)
Quarter: 2009Q3

REPORT INFORMATION
  Report Type: 
  Country: None (occurrence: None)
  Receive Date: 20090929
  Receipt Date: 20090915
  Transmission Date: 20100115
  Serious: Yes (Death)
  Sender: FDA-Public Use
  Company Number: US-ELI_LILLY_AND_COMPANY-US200909001200

PATIENT
  Sex: Female
  Weight: 74.2 kg

DRUGS (1)
  1. EFFIENT [Suspect]

REACTIONS (1)
  - DEATH [None]
